FAERS Safety Report 10953022 (Version 1)
Quarter: 2015Q1

REPORT INFORMATION
  Report Type: Spontaneous
  Country: FR (occurrence: FR)
  Receive Date: 20150325
  Receipt Date: 20150325
  Transmission Date: 20150721
  Serious: Yes (Hospitalization, Other)
  Sender: FDA-Public Use
  Company Number: FR-PFIZER INC-2015096617

PATIENT
  Age: 68 Year
  Sex: Female

DRUGS (21)
  1. TANGANIL [Concomitant]
     Active Substance: ACETYLLEUCINE
     Dosage: 500 MG, 2X/DAY
     Route: 048
     Dates: end: 20150131
  2. LEVETIRACETAM BIOGARAN [Suspect]
     Active Substance: LEVETIRACETAM
     Dosage: 1 DF OF 250 MG IN THE MORNING, 3 DF OF 250 MG IN THE EVENING (1-0-3), 2X/DAY
     Route: 048
     Dates: start: 20150205, end: 20150205
  3. CARBAMAZEPINE. [Suspect]
     Active Substance: CARBAMAZEPINE
     Indication: PARTIAL SEIZURES
     Dosage: 200 MG, 2X/DAY
     Route: 048
     Dates: start: 20141226, end: 20150131
  4. IMOVANE [Suspect]
     Active Substance: ZOPICLONE
     Indication: INSOMNIA
     Dosage: 3.75 MG, 1X/DAY
     Route: 048
     Dates: start: 20150114, end: 20150131
  5. KARDEGIC [Concomitant]
     Active Substance: ASPIRIN LYSINE
     Dosage: 75 MG, 1X/DAY
     Route: 048
     Dates: start: 20150204
  6. CONTRAMAL [Concomitant]
     Active Substance: TRAMADOL HYDROCHLORIDE
     Dosage: 50 MG, AS NEEDED MAXIMUM 4 TIMES DAILY
     Route: 041
     Dates: start: 20150114, end: 20150203
  7. XEROQUEL LP [Suspect]
     Active Substance: QUETIAPINE FUMARATE
     Indication: BIPOLAR DISORDER
     Dosage: 300 MG, 1X/DAY
     Route: 048
     Dates: start: 20141015, end: 20150131
  8. LEVETIRACETAM BIOGARAN [Suspect]
     Active Substance: LEVETIRACETAM
     Indication: PARTIAL SEIZURES
     Dosage: 1 DF OF 250 MG, 1X/DAY
     Route: 048
     Dates: start: 20141121, end: 20150203
  9. LEVETIRACETAM BIOGARAN [Suspect]
     Active Substance: LEVETIRACETAM
     Dosage: 1 DF OF 250 MG, 2X/DAY (1-0-1)
     Route: 048
     Dates: start: 20150204, end: 20150204
  10. TAHOR [Concomitant]
     Active Substance: ATORVASTATIN CALCIUM
     Dosage: 80 MG, 1X/DAY
     Route: 048
     Dates: start: 20150115, end: 20150131
  11. CONTRAMAL [Concomitant]
     Active Substance: TRAMADOL HYDROCHLORIDE
     Dosage: UNK
     Route: 041
     Dates: start: 20150211
  12. CALCIPARINE [Concomitant]
     Active Substance: HEPARIN CALCIUM
     Dosage: 5000 IU, 2X/DAY
     Route: 042
     Dates: start: 20150203
  13. LYRICA [Suspect]
     Active Substance: PREGABALIN
     Indication: NEURALGIA
     Dosage: 25 MG, 1X/DAY
     Route: 048
     Dates: start: 20150120, end: 20150131
  14. MODURETIC 5-50 [Suspect]
     Active Substance: AMILORIDE HYDROCHLORIDE\HYDROCHLOROTHIAZIDE
     Dosage: 2 DF ([AMILORIDE HYDROCHLORIDE 2.5 MG]/[HYDROCHLOROTHIAZIDE 25 MG]), 1X/DAY
     Route: 048
     Dates: start: 20150122, end: 20150131
  15. EUPANTOL [Concomitant]
     Active Substance: PANTOPRAZOLE SODIUM
     Dosage: 20 MG, 1X/DAY
     Route: 051
     Dates: start: 20150111, end: 20150131
  16. KARDEGIC [Concomitant]
     Active Substance: ASPIRIN LYSINE
     Dosage: 75 MG, 1X/DAY
     Route: 048
     Dates: start: 20150115, end: 20150131
  17. CALCIPARINE [Concomitant]
     Active Substance: HEPARIN CALCIUM
     Dosage: 7000 IU, 2X/DAY
     Route: 042
     Dates: start: 20150123, end: 20150131
  18. EUPANTOL [Concomitant]
     Active Substance: PANTOPRAZOLE SODIUM
     Dosage: 20 MG, 1X/DAY
     Route: 051
     Dates: start: 20150210
  19. LEVETIRACETAM BIOGARAN [Suspect]
     Active Substance: LEVETIRACETAM
     Dosage: 3 DF OF 250 MG IN THE MORNING, (3-0-0)
     Route: 048
     Dates: start: 20150206, end: 20150206
  20. ATARAX [Concomitant]
     Active Substance: HYDROXYZINE\HYDROXYZINE HYDROCHLORIDE
     Dosage: 25 MG, AS NEEDED
     Route: 048
  21. TARDYFERON [Concomitant]
     Active Substance: FERROUS SULFATE\FOLIC ACID
     Dosage: UNK
     Dates: end: 20150131

REACTIONS (9)
  - Thrombosis [Unknown]
  - Peripheral ischaemia [Unknown]
  - Staphylococcal infection [Unknown]
  - Partial seizures [Unknown]
  - Sepsis [Unknown]
  - Meningitis [Unknown]
  - Acoustic neuroma [Unknown]
  - Agranulocytosis [Recovered/Resolved]
  - Bone marrow failure [Recovered/Resolved]

NARRATIVE: CASE EVENT DATE: 20150114
